FAERS Safety Report 10925951 (Version 1)
Quarter: 2015Q1

REPORT INFORMATION
  Report Type: Spontaneous
  Country: NZ (occurrence: None)
  Receive Date: 20150313
  Receipt Date: 20150313
  Transmission Date: 20150721
  Serious: Yes (Other)
  Sender: FDA-Public Use
  Company Number: 2015JUB00068

PATIENT
  Age: 33 Year
  Sex: Female

DRUGS (2)
  1. CLOBAZAM [Concomitant]
     Active Substance: CLOBAZAM
  2. LAMOTRIGINE (LAMOTRIGINE) UNKNOWN [Suspect]
     Active Substance: LAMOTRIGINE
     Indication: TEMPORAL LOBE EPILEPSY

REACTIONS (4)
  - Hypogammaglobulinaemia [None]
  - Appendicitis [None]
  - Interstitial lung disease [None]
  - Upper respiratory tract infection [None]
